FAERS Safety Report 4486898-X (Version None)
Quarter: 2004Q3

REPORT INFORMATION
  Report Type: 
  Country: None (occurrence: None)
  Receive Date: 20040921
  Receipt Date: 20031002
  Transmission Date: 20050211
  Serious: Yes (Hospitalization)
  Sender: FDA-Public Use
  Company Number: 163-20785-03100156

PATIENT
  Age: 75 Year
  Sex: Male

DRUGS (3)
  1. THALOMID [Suspect]
     Indication: MULTIPLE MYELOMA
     Dosage: 50 MG, EVERY OTHER DAY, ORAL
     Route: 048
     Dates: start: 20021125
  2. DEXAMETHASONE [Suspect]
     Indication: MULTIPLE MYELOMA
     Dosage: 12 MG, X 4 DAYS EVERY 28 DAYS, ORAL
     Route: 048
     Dates: start: 20021125
  3. RANITIDINE [Concomitant]

REACTIONS (4)
  - GASTRIC DISORDER [None]
  - HAEMORRHAGIC DISORDER [None]
  - NAUSEA [None]
  - VOMITING [None]
